FAERS Safety Report 5284747-3 (Version None)
Quarter: 2007Q1

REPORT INFORMATION
  Report Type: 
  Country: None (occurrence: None)
  Receive Date: 20061222
  Receipt Date: 20040715
  Transmission Date: 20070707
  Serious: Yes (Disabling, Other)
  Sender: FDA-Public Use
  Company Number: PHEH2004US07662

PATIENT
  Sex: Female

DRUGS (3)
  1. VIVELLE [Suspect]
     Indication: HORMONE REPLACEMENT THERAPY
  2. PREMARIN [Suspect]
  3. CLIMARA [Suspect]

REACTIONS (5)
  - ANXIETY [None]
  - BREAST CANCER FEMALE [None]
  - EMOTIONAL DISTRESS [None]
  - INJURY [None]
  - SCAR [None]
